FAERS Safety Report 11610477 (Version 2)
Quarter: 2018Q4

REPORT INFORMATION
  Report Type: Spontaneous
  Country: US (occurrence: US)
  Receive Date: 20151008
  Receipt Date: 20181210
  Transmission Date: 20190204
  Serious: Yes (Other)
  Sender: FDA-Public Use
  Company Number: US-TEVA-599575ACC

PATIENT
  Sex: Female

DRUGS (1)
  1. PLAN B ONE-STEP [Suspect]
     Active Substance: LEVONORGESTREL
     Indication: POST COITAL CONTRACEPTION
     Dates: start: 2015

REACTIONS (5)
  - Dizziness [Recovered/Resolved]
  - Pregnancy [Unknown]
  - Maternal exposure before pregnancy [Unknown]
  - Headache [Recovered/Resolved]
  - Dysmenorrhoea [Not Recovered/Not Resolved]
